FAERS Safety Report 5341276-6 (Version None)
Quarter: 2007Q2

REPORT INFORMATION
  Report Type: 
  Country: None (occurrence: None)
  Receive Date: 20070404
  Receipt Date: 20070123
  Transmission Date: 20071010
  Serious: Yes (Other)
  Sender: FDA-Public Use
  Company Number: 2007006055

PATIENT
  Age: 69 Year
  Sex: Male

DRUGS (3)
  1. GEODON [Suspect]
     Indication: BIPOLAR DISORDER
     Dosage: 120 MG
  2. LAMICTAL [Concomitant]
  3. EFFEXOR XR [Concomitant]

REACTIONS (1)
  - TARDIVE DYSKINESIA [None]
